FAERS Safety Report 4307335-1 (Version None)
Quarter: 2004Q1

REPORT INFORMATION
  Report Type: 
  Country: None (occurrence: None)
  Receive Date: 20040226
  Receipt Date: 20040213
  Transmission Date: 20041129
  Serious: Yes (Hospitalization, Other)
  Sender: FDA-Public Use
  Company Number: HQWYE480220JAN04

PATIENT
  Age: 74 Year
  Sex: Female
  Weight: 86.26 kg

DRUGS (12)
  1. CORDARONE [Suspect]
     Indication: DEMENTIA
     Dosage: BLINDED THERAPY DAILY, ORAL
     Route: 048
     Dates: start: 20030307, end: 20030522
  2. CORDARONE [Suspect]
     Indication: MENOPAUSE
     Dosage: BLINDED THERAPY DAILY, ORAL
     Route: 048
     Dates: start: 20030307, end: 20030522
  3. BLINDED THERAPY FOR CONJUGATED ESTROGENS/MEDROXYPROGESTERONE ACETATE ( [Suspect]
  4. XANAX [Concomitant]
  5. ADVAIR DISKUS [Concomitant]
  6. ALBUTEROL [Concomitant]
  7. HYDROCHLOROTHIAZIDE [Concomitant]
  8. MULTIVITAMINS, PLAIN (MULTIVITAMINS, PLAIN) [Concomitant]
  9. VITAMIN E [Concomitant]
  10. FOLIC ACID [Concomitant]
  11. ASPIRIN [Concomitant]
  12. CELEXA [Concomitant]

REACTIONS (4)
  - ABDOMINAL DISTENSION [None]
  - ASCITES [None]
  - HEPATIC CIRRHOSIS [None]
  - HEPATIC STEATOSIS [None]
